FAERS Safety Report 23669541 (Version 1)
Quarter: 2024Q1

REPORT INFORMATION
  Report Type: Spontaneous
  Country: CN (occurrence: None)
  Receive Date: 20240325
  Receipt Date: 20240325
  Transmission Date: 20240409
  Serious: Yes (Life-Threatening, Other)
  Sender: FDA-Public Use
  Company Number: 2024A072087

PATIENT
  Age: 19004 Day
  Sex: Female

DRUGS (2)
  1. ACALABRUTINIB [Suspect]
     Active Substance: ACALABRUTINIB
     Indication: Targeted cancer therapy
     Route: 048
     Dates: start: 20240218, end: 20240321
  2. RITUXIMAB [Suspect]
     Active Substance: RITUXIMAB
     Indication: Targeted cancer therapy
     Route: 041
     Dates: start: 20240218, end: 20240218

REACTIONS (3)
  - Granulocytopenia [Unknown]
  - Haemoglobin decreased [Unknown]
  - Platelet count decreased [Unknown]

NARRATIVE: CASE EVENT DATE: 20240319
